FAERS Safety Report 17635738 (Version 8)
Quarter: 2020Q2

REPORT INFORMATION
  Report Type: Spontaneous
  Country: DE (occurrence: DE)
  Receive Date: 20200406
  Receipt Date: 20200616
  Transmission Date: 20200713
  Serious: Yes (Life-Threatening, Hospitalization)
  Sender: FDA-Public Use
  Company Number: DE-009507513-2004DEU000601

PATIENT
  Age: 68 Year
  Sex: Male
  Weight: 77 kg

DRUGS (14)
  1. AVASTIN [Interacting]
     Active Substance: BEVACIZUMAB
     Indication: DIABETIC RETINAL OEDEMA
     Dosage: INJECTED IN THE RIGHT EYE 13:30
     Route: 031
     Dates: start: 20200115
  2. MILGAMMA PROTECT [Interacting]
     Active Substance: BENFOTIAMINE
     Indication: CARDIOVASCULAR DISORDER
     Dosage: 300 MILLIGRAM, QD
     Route: 065
     Dates: start: 201808
  3. JANUMET [Suspect]
     Active Substance: METFORMIN HYDROCHLORIDE\SITAGLIPTIN PHOSPHATE
     Indication: DIABETES MELLITUS
     Dosage: 1 DOSAGE FORM, Q12H (ALSO REPORTED AS 2 DOSAGE FORM, QDAND AS 1-0-1))
     Route: 065
     Dates: start: 201808
  4. INSULIN GLARGINE [Interacting]
     Active Substance: INSULIN GLARGINE
     Indication: DIABETES MELLITUS
     Dosage: 15 INTERNATIONAL UNIT, QD, IN THE EVENING
     Route: 065
     Dates: start: 201808
  5. ALLOPURINOL. [Interacting]
     Active Substance: ALLOPURINOL
     Indication: GOUT
     Dosage: 100 MILLIGRAM, DAILY
     Route: 065
     Dates: start: 201808
  6. ABASAGLAR [Interacting]
     Active Substance: INSULIN GLARGINE
     Indication: DIABETES MELLITUS
     Dosage: 15 INTERNATIONAL UNIT, QD
     Route: 065
     Dates: start: 201808
  7. IVABRADINE HYDROCHLORIDE [Interacting]
     Active Substance: IVABRADINE HYDROCHLORIDE
     Indication: CARDIAC DISORDER
     Dosage: 7.5 MILLIGRAM, QD
     Route: 065
     Dates: start: 201808
  8. AMLODIPINE BESYLATE. [Interacting]
     Active Substance: AMLODIPINE BESYLATE
     Indication: HYPERTENSION
     Dosage: 5 MILLIGRAM, Q12H (ALSO REPORTED AS 10 MG, QD)
     Route: 065
     Dates: start: 201808
  9. SIMVASTATIN. [Interacting]
     Active Substance: SIMVASTATIN
     Indication: BLOOD CHOLESTEROL
     Dosage: 40 MILLIGRAM, QD AT NIGHT AND AS 1-0-1)
     Route: 065
     Dates: start: 201808
  10. RAMIPRIL. [Interacting]
     Active Substance: RAMIPRIL
     Indication: HYPERTENSION
     Dosage: 5 MILLIGRAM, Q12H (ALSO REPORTED AS 10 MG, QD)
     Route: 065
     Dates: start: 201808
  11. TORSEMIDE. [Interacting]
     Active Substance: TORSEMIDE
     Indication: RENAL DISORDER
     Dosage: 10 MILLIGRAM, QD IN MORNING
     Route: 065
     Dates: start: 201808
  12. ELIQUIS [Interacting]
     Active Substance: APIXABAN
     Indication: ATRIAL FIBRILLATION
     Dosage: 5 MILLIGRAM, BID (ALSO REPORTED AS 10 MG, QD)
     Route: 065
     Dates: start: 201808
  13. SPIRONOLACTONE. [Interacting]
     Active Substance: SPIRONOLACTONE
     Indication: CARDIAC DISORDER
     Dosage: 50 MILLIGRAM, DAILY
     Route: 065
     Dates: start: 201808
  14. CARVEDILOL. [Interacting]
     Active Substance: CARVEDILOL
     Indication: CARDIAC DISORDER
     Dosage: 25 MILLIGRAM, Q12H (ALSO REPORTED AS 50 MG, QD)
     Route: 065
     Dates: start: 201808

REACTIONS (4)
  - Drug interaction [Unknown]
  - Seizure [Recovered/Resolved]
  - Oculogyric crisis [Recovered/Resolved]
  - Movement disorder [Recovered/Resolved]

NARRATIVE: CASE EVENT DATE: 20200115
